FAERS Safety Report 8925591 (Version 2)
Quarter: 2012Q4

REPORT INFORMATION
  Report Type: 
  Country: US (occurrence: US)
  Receive Date: 20121126
  Receipt Date: 20121224
  Transmission Date: 20130627
  Serious: Yes (Hospitalization, Other)
  Sender: FDA-Public Use
  Company Number: US-UCBSA-070746

PATIENT
  Age: 55 Year
  Sex: Male

DRUGS (17)
  1. CIMZIA [Suspect]
     Indication: CROHN^S DISEASE
     Route: 058
     Dates: start: 20120612, end: 20121018
  2. ASPIR-81 [Concomitant]
     Dosage: 81 MG DELAYED RELEASE TABLET
  3. FISH OIL [Concomitant]
     Dosage: WITH MEAL
  4. CALCIUM [Concomitant]
     Dosage: WITH MEAL
  5. VITAMIN C [Concomitant]
     Dosage: CHEWABLE TABLET; AS DIRECTED
     Route: 048
  6. MULTIVITAMINS [Concomitant]
     Dosage: AS DIRECTED
  7. B-12 [Concomitant]
     Dosage: UNDER THE TONGUE AND ALLOW TO DISSOLVE
     Route: 060
  8. PURINETHOL [Concomitant]
  9. IRON [Concomitant]
     Dosage: 65 FE
  10. PRILOSEC [Concomitant]
     Dosage: DELAYED RELEASE TABLET
  11. ENTOCORT EC [Concomitant]
     Dosage: STRENGTH:3MG (3 CAPSULES ONCE A DAY)
     Route: 048
     Dates: end: 201209
  12. FLAGYL [Concomitant]
     Route: 048
     Dates: start: 201209
  13. BENTYL [Concomitant]
  14. CIPRO [Concomitant]
     Route: 048
     Dates: start: 201209
  15. POLY IRON 150 [Concomitant]
     Dosage: 150 MG AS REQUIRED 1 CAPSULE .
  16. PREDNISONE [Concomitant]
     Route: 048
     Dates: start: 201209
  17. 6-MP [Concomitant]

REACTIONS (2)
  - Crohn^s disease [Recovered/Resolved]
  - Oral candidiasis [Recovered/Resolved]
